FAERS Safety Report 10204088 (Version 1)
Quarter: 2014Q2

REPORT INFORMATION
  Report Type: Spontaneous
  Country: SI (occurrence: SI)
  Receive Date: 20140529
  Receipt Date: 20140529
  Transmission Date: 20141212
  Serious: Yes (Life-Threatening)
  Sender: FDA-Public Use
  Company Number: SI-JNJFOC-20140515865

PATIENT
  Age: 47 Year
  Sex: Female
  Weight: 72 kg

DRUGS (5)
  1. REMICADE [Suspect]
     Indication: RHEUMATOID ARTHRITIS
     Route: 042
     Dates: start: 20031007, end: 20130530
  2. OLFEN [Concomitant]
     Dosage: WHEN NEEDED
     Route: 065
  3. METHOTREXATE [Concomitant]
     Route: 065
  4. EUTHYROX [Concomitant]
     Route: 065
  5. FOLACIN [Concomitant]
     Route: 065

REACTIONS (2)
  - Peripheral artery thrombosis [Not Recovered/Not Resolved]
  - Carotid artery thrombosis [Not Recovered/Not Resolved]
